FAERS Safety Report 14134465 (Version 1)
Quarter: 2017Q4

REPORT INFORMATION
  Report Type: Spontaneous
  Country: BR (occurrence: BR)
  Receive Date: 20171027
  Receipt Date: 20171027
  Transmission Date: 20180321
  Serious: Yes (Other)
  Sender: FDA-Public Use
  Company Number: BR-ROCHE-2013410

PATIENT
  Sex: Female

DRUGS (1)
  1. RIVOTRIL [Suspect]
     Active Substance: CLONAZEPAM
     Indication: SLEEP DISORDER THERAPY
     Route: 065

REACTIONS (7)
  - Somnolence [Not Recovered/Not Resolved]
  - Off label use [Unknown]
  - Extra dose administered [Unknown]
  - Intentional product use issue [Unknown]
  - Fall [Unknown]
  - Gait disturbance [Unknown]
  - Asthenia [Not Recovered/Not Resolved]
